FAERS Safety Report 18146239 (Version 1)
Quarter: 2020Q3

REPORT INFORMATION
  Report Type: Other
  Country: CA (occurrence: CA)
  Receive Date: 20200813
  Receipt Date: 20200813
  Transmission Date: 20201103
  Serious: Yes (Life-Threatening, Other)
  Sender: FDA-Public Use
  Company Number: CA-APOTEX-2020AP015472

PATIENT
  Age: 84 Year
  Sex: Female

DRUGS (1)
  1. ROSUVASTATIN?20 [Suspect]
     Active Substance: ROSUVASTATIN
     Indication: HYPERCHOLESTEROLAEMIA
     Dosage: 20 MILLIGRAM, QD
     Route: 048

REACTIONS (3)
  - Muscular weakness [Recovering/Resolving]
  - Cough [Recovering/Resolving]
  - Monoplegia [Recovering/Resolving]
